FAERS Safety Report 4775261-X (Version None)
Quarter: 2005Q3

REPORT INFORMATION
  Report Type: 
  Country: None (occurrence: None)
  Receive Date: 20050921
  Receipt Date: 20050921
  Transmission Date: 20060218
  Serious: No
  Sender: FDA-Public Use
  Company Number: None

PATIENT
  Age: 66 Year
  Sex: Female

DRUGS (6)
  1. OXALIPLATIN [Suspect]
     Indication: COLON CANCER
     Dosage: 148 MG IV INFUSION OVER 6 HR
     Route: 042
     Dates: start: 20050914
  2. CF [Concomitant]
  3. BENADRYL [Concomitant]
  4. DECADRON [Concomitant]
  5. KYTRIL [Concomitant]
  6. FLUOROURACIL [Concomitant]

REACTIONS (5)
  - BLOOD PRESSURE SYSTOLIC INCREASED [None]
  - ERYTHEMA [None]
  - FEELING HOT [None]
  - FLUSHING [None]
  - INFUSION RELATED REACTION [None]
